FAERS Safety Report 7916493 (Version 4)
Quarter: 2012Q4

REPORT INFORMATION
  Report Type: 
  Country: IT (occurrence: IT)
  Receive Date: 20110427
  Receipt Date: 20121220
  Transmission Date: 20130627
  Serious: Yes (Life-Threatening, Hospitalization, Other)
  Sender: FDA-Public Use
  Company Number: IT-PFIZER INC-2011088872

PATIENT
  Age: 75 Year
  Sex: Female

DRUGS (5)
  1. AMLODIPINE BESILATE [Suspect]
     Indication: HYPERTENSION
     Dosage: 10 mg, UNK
     Route: 065
     Dates: start: 2002, end: 20100819
  2. FUROSEMIDE [Suspect]
     Dosage: 25 mg, UNK
  3. ATENOLOL [Suspect]
     Dosage: 100 mg, UNK
     Route: 065
     Dates: start: 2002
  4. DAPAGLIFLOZIN [Suspect]
     Indication: TYPE 2 DIABETES MELLITUS
     Dosage: 10 mg/kg
     Route: 048
     Dates: start: 20090423, end: 20100816
  5. VALSARTAN [Suspect]
     Indication: HYPERTENSION
     Dosage: 160 mg, UNK
     Route: 065
     Dates: start: 20091217, end: 20100819

REACTIONS (1)
  - Renal failure acute [Recovered/Resolved]
